FAERS Safety Report 21223923 (Version 1)
Quarter: 2022Q3

REPORT INFORMATION
  Report Type: Spontaneous
  Country: US (occurrence: US)
  Receive Date: 20220817
  Receipt Date: 20220817
  Transmission Date: 20221027
  Serious: Yes (Other)
  Sender: FDA-Public Use
  Company Number: US-ORGANON-O2208USA001335

PATIENT
  Age: 22 Year
  Sex: Female
  Weight: 55.782 kg

DRUGS (1)
  1. NEXPLANON [Suspect]
     Active Substance: ETONOGESTREL
     Indication: Contraception
     Dosage: 1 IMPLANT OF 68 MILLIGRAM IN LEFT ARM, EVERY 3 YEARS
     Route: 059
     Dates: start: 20220404, end: 20220812

REACTIONS (2)
  - Device expulsion [Recovered/Resolved]
  - Implant site pain [Unknown]

NARRATIVE: CASE EVENT DATE: 20220401
